FAERS Safety Report 21525333 (Version 1)
Quarter: 2022Q4

REPORT INFORMATION
  Report Type: Report from Study
  Country: PK (occurrence: PK)
  Receive Date: 20221030
  Receipt Date: 20221030
  Transmission Date: 20230113
  Serious: Yes (Other)
  Sender: FDA-Public Use
  Company Number: PK-NOVARTISPH-NVSC2021PK272542

PATIENT
  Age: 65 Year
  Sex: Female

DRUGS (6)
  1. CERTICAN [Suspect]
     Active Substance: EVEROLIMUS
     Indication: Transplant
     Dosage: 1 DOSAGE FORM (0.25 MG), BID (1 TABLET IN MORNING AND 1 TABLET AT NIGHT)
     Route: 048
     Dates: start: 20210916, end: 20211016
  2. CERTICAN [Suspect]
     Active Substance: EVEROLIMUS
     Dosage: 2 DOSAGE FORM (0.25 MG), BID (2 TABLET IN MORNING AND 2 TABLET AT NIGHT) 4 TABS/DAY TO 8 TABS/ DAY
     Route: 048
     Dates: start: 202111
  3. CERTICAN [Suspect]
     Active Substance: EVEROLIMUS
     Dosage: 1 DOSAGE FORM (0.5 MG), BID
     Route: 048
  4. CELLCEPT [Concomitant]
     Active Substance: MYCOPHENOLATE MOFETIL
     Indication: Product used for unknown indication
     Dosage: 1 DOSAGE FORM, BID
     Route: 065
  5. FLUCONAZOLE [Concomitant]
     Active Substance: FLUCONAZOLE
     Indication: Product used for unknown indication
     Dosage: 1 DOSAGE FORM, QD
     Route: 065
  6. SENSIVAL [Concomitant]
     Indication: Product used for unknown indication
     Dosage: 1 DOSAGE FORM, QD
     Route: 065

REACTIONS (3)
  - Renal cell carcinoma [Unknown]
  - Drug level increased [Not Recovered/Not Resolved]
  - Drug level fluctuating [Not Recovered/Not Resolved]

NARRATIVE: CASE EVENT DATE: 20211101
